FAERS Safety Report 4699404-1 (Version None)
Quarter: 2005Q2

REPORT INFORMATION
  Report Type: 
  Country: None (occurrence: None)
  Receive Date: 20050621
  Receipt Date: 20050504
  Transmission Date: 20051028
  Serious: Yes (Hospitalization)
  Sender: FDA-Public Use
  Company Number: ENTC2005-0121

PATIENT
  Age: 56 Year
  Sex: Male

DRUGS (2)
  1. STALEVO 100 [Suspect]
     Indication: INTENTIONAL MISUSE
     Route: 048
  2. STALEVO 100 [Suspect]
     Indication: OVERDOSE
     Route: 048

REACTIONS (6)
  - CHROMATURIA [None]
  - HAEMODYNAMIC INSTABILITY [None]
  - INTENTIONAL MISUSE [None]
  - JAUNDICE [None]
  - OVERDOSE [None]
  - SUICIDE ATTEMPT [None]
